FAERS Safety Report 6878171-7 (Version None)
Quarter: 2010Q2

REPORT INFORMATION
  Report Type: 
  Country: None (occurrence: None)
  Receive Date: 20100623
  Receipt Date: 20080630
  Transmission Date: 20101027
  Serious: No
  Sender: FDA-Public Use
  Company Number: 2008-00093

PATIENT
  Age: 59 Year
  Sex: Female
  Weight: 74.8435 kg

DRUGS (3)
  1. ZICAM COLD REMEDY NASAL GEL [Suspect]
     Indication: NASOPHARYNGITIS
     Dosage: 1 DOSE
     Dates: start: 20080401
  2. ZOCOR [Concomitant]
  3. RANITIDINE (ZANTAC) [Concomitant]

REACTIONS (3)
  - ANOSMIA [None]
  - EYE IRRITATION [None]
  - NASAL DISCOMFORT [None]
